FAERS Safety Report 6337024-3 (Version None)
Quarter: 2009Q3

REPORT INFORMATION
  Report Type: 
  Country: None (occurrence: None)
  Receive Date: 20090831
  Receipt Date: 20090819
  Transmission Date: 20100115
  Serious: Yes (Hospitalization)
  Sender: FDA-Public Use
  Company Number: 2009AL001963

PATIENT
  Age: 53 Year
  Sex: Female

DRUGS (93)
  1. DIGOXIN [Suspect]
     Dosage: 0.25MG, DAILY, PO
     Route: 048
     Dates: start: 20000101, end: 20090428
  2. VI-Q-TUSS SYRUP [Concomitant]
  3. LASIX [Concomitant]
  4. COREG [Concomitant]
  5. LANTUS [Concomitant]
  6. DIOVAN [Concomitant]
  7. LIPITOR [Concomitant]
  8. ALLEGRA [Concomitant]
  9. XANAX [Concomitant]
  10. MULTI-VITAMIN [Concomitant]
  11. ASPIRIN [Concomitant]
  12. EFFEXOR [Concomitant]
  13. FLEXERIL [Concomitant]
  14. MENTANX [Concomitant]
  15. NIACIN [Concomitant]
  16. IBUPROFEN [Concomitant]
  17. ALDACTONE [Concomitant]
  18. PRILOSEC [Concomitant]
  19. COZAAR [Concomitant]
  20. CELEXA [Concomitant]
  21. HUMULIN R [Concomitant]
  22. OPTIVA [Concomitant]
  23. REFRESH [Concomitant]
  24. DIPHEN/ATROP [Concomitant]
  25. HYOSCYAMINE [Concomitant]
  26. CEPHALEXIN [Concomitant]
  27. AMOXICILLIN [Concomitant]
  28. GUAIFENEX [Concomitant]
  29. HYDROCODONE [Concomitant]
  30. HUMALOG [Concomitant]
  31. ACULAR [Concomitant]
  32. CLINDAMYCIN [Concomitant]
  33. MYTUSSIN [Concomitant]
  34. PROLIX [Concomitant]
  35. ZITHROMAX [Concomitant]
  36. NOVOLOG [Concomitant]
  37. ALPRAZOLAM [Concomitant]
  38. HYDROXYZ HCL [Concomitant]
  39. ZYRTEC [Concomitant]
  40. FLAVOXATE HYDROCHLORIDE COATED TAB [Concomitant]
  41. PREMARIN [Concomitant]
  42. LEVAQUIN [Concomitant]
  43. NASONEX [Concomitant]
  44. CLONAZEPAM [Concomitant]
  45. NITROFURANTOIN [Concomitant]
  46. MECLIZINE [Concomitant]
  47. TRIMETHOBENZ [Concomitant]
  48. KETEK [Concomitant]
  49. NITROFUR [Concomitant]
  50. TERCONAZOLE [Concomitant]
  51. CLINDESSE [Concomitant]
  52. METANK [Concomitant]
  53. TRIMETHOPRIM [Concomitant]
  54. PROPO-N/APAP [Concomitant]
  55. ERYTHROMYCIN [Concomitant]
  56. GUIADEX [Concomitant]
  57. CYCLOBENZAPR [Concomitant]
  58. METANX [Concomitant]
  59. PREDNISOLONE [Concomitant]
  60. BACITRACIN [Concomitant]
  61. FLUCONAZOLE [Concomitant]
  62. DOXYCYCL HYC [Concomitant]
  63. PROCHLORPER [Concomitant]
  64. UROXATRAL [Concomitant]
  65. CLARITHROMYCIN [Concomitant]
  66. J-TAN D [Concomitant]
  67. SINGULAIR [Concomitant]
  68. VERAMYST [Concomitant]
  69. NEVANAC [Concomitant]
  70. VIVELLE-DOT [Concomitant]
  71. PROMETRIUM [Concomitant]
  72. ARMOUR [Concomitant]
  73. LOTREL [Concomitant]
  74. ACULAR [Concomitant]
  75. ACTOS [Concomitant]
  76. VAZOTAN [Concomitant]
  77. PROVENTIL-HFA [Concomitant]
  78. AZOR [Concomitant]
  79. RESTASIS [Concomitant]
  80. DIAMOX [Concomitant]
  81. LOTEMAX [Concomitant]
  82. RISAQUAD [Concomitant]
  83. VENLAFAXINE HYDROCHLORIDE [Concomitant]
  84. EFFEXOR [Concomitant]
  85. METHYLPRD [Concomitant]
  86. CHERATUSSIN [Concomitant]
  87. BENICAR [Concomitant]
  88. ODANSETRON [Concomitant]
  89. TERBINAFINE HCL [Concomitant]
  90. TAMIFLU [Concomitant]
  91. FLAVOXATE HYDROCHLORIDE COATED TAB [Concomitant]
  92. REFRESH [Concomitant]
  93. NITROFUR [Concomitant]

REACTIONS (36)
  - ABDOMINAL PAIN [None]
  - AGITATION [None]
  - ANXIETY [None]
  - ASTHENIA [None]
  - BLINDNESS UNILATERAL [None]
  - BLOOD GLUCOSE DECREASED [None]
  - BLOOD GLUCOSE INCREASED [None]
  - BONE PAIN [None]
  - CARDIAC FAILURE CONGESTIVE [None]
  - CHEST DISCOMFORT [None]
  - CHROMATOPSIA [None]
  - COUGH [None]
  - DEHYDRATION [None]
  - DIARRHOEA [None]
  - DIZZINESS [None]
  - DYSPNOEA [None]
  - FATIGUE [None]
  - FEELING ABNORMAL [None]
  - FOOT FRACTURE [None]
  - HYPERHIDROSIS [None]
  - HYPERTENSION [None]
  - HYPOTENSION [None]
  - INJURY [None]
  - MALAISE [None]
  - MUSCLE SPASMS [None]
  - NAUSEA [None]
  - PAIN [None]
  - PAIN IN EXTREMITY [None]
  - PRESYNCOPE [None]
  - PROTEINURIA [None]
  - SYNCOPE [None]
  - TENOSYNOVITIS [None]
  - THERAPEUTIC AGENT TOXICITY [None]
  - VIRAL INFECTION [None]
  - VOMITING [None]
  - WHITE BLOOD CELL COUNT INCREASED [None]
